FAERS Safety Report 8301750-7 (Version None)
Quarter: 2012Q2

REPORT INFORMATION
  Report Type: 
  Country: None (occurrence: None)
  Receive Date: 20120420
  Receipt Date: 20120411
  Transmission Date: 20120825
  Serious: Yes (Hospitalization, Disabling)
  Sender: FDA-Public Use
  Company Number: US-ACTELION-A-NJ2012-60769

PATIENT

DRUGS (3)
  1. ADCIRCA [Concomitant]
  2. TRACLEER [Suspect]
     Indication: PULMONARY ARTERIAL HYPERTENSION
     Dosage: UNK
     Route: 048
     Dates: start: 20061121
  3. CALCIUM CHANNEL BLOCKERS [Concomitant]

REACTIONS (4)
  - DIZZINESS [None]
  - FALL [None]
  - STERNAL FRACTURE [None]
  - PELVIC FRACTURE [None]
